FAERS Safety Report 10231813 (Version 1)
Quarter: 2014Q2

REPORT INFORMATION
  Report Type: Spontaneous
  Country: US (occurrence: US)
  Receive Date: 20140612
  Receipt Date: 20140612
  Transmission Date: 20141212
  Serious: No
  Sender: FDA-Public Use
  Company Number: US-009507513-1406USA004072

PATIENT
  Sex: Female

DRUGS (3)
  1. JANUMET XR [Suspect]
     Indication: DIABETES MELLITUS
     Dosage: 100 MG, QD
     Route: 048
     Dates: start: 201401, end: 2014
  2. BENICAR [Concomitant]
  3. CALCIUM (UNSPECIFIED) [Concomitant]

REACTIONS (1)
  - Diarrhoea [Recovered/Resolved]
